FAERS Safety Report 9192817 (Version 1)
Quarter: 2013Q1

REPORT INFORMATION
  Report Type: Spontaneous
  Country: US (occurrence: None)
  Receive Date: 20120703
  Receipt Date: 20120703
  Transmission Date: 20140127
  Serious: No
  Sender: FDA-Public Use
  Company Number: PHEH2012US007735

PATIENT
  Age: 27 Year
  Sex: Female
  Weight: 52.5 kg

DRUGS (3)
  1. GILENYA [Suspect]
     Indication: MULTIPLE SCLEROSIS
     Route: 048
     Dates: start: 20120319
  2. GINGER [Suspect]
  3. CONTRACEPTIVES (NO INGREDIENTS/SUBSTANCES) [Concomitant]

REACTIONS (5)
  - Fatigue [None]
  - Chest discomfort [None]
  - Rash [None]
  - Heart rate decreased [None]
  - Drug interaction [None]
